FAERS Safety Report 21733272 (Version 4)
Quarter: 2023Q1

REPORT INFORMATION
  Report Type: Spontaneous
  Country: US (occurrence: US)
  Receive Date: 20221215
  Receipt Date: 20230126
  Transmission Date: 20230418
  Serious: Yes (Other)
  Sender: FDA-Public Use
  Company Number: US-BAYER-2022P027471

PATIENT
  Age: 62 Year
  Sex: Male

DRUGS (5)
  1. KOVALTRY [Suspect]
     Active Substance: ANTIHEMOPHILIC FACTOR, HUMAN RECOMBINANT
     Dosage: 7100 U, UNK
     Route: 042
     Dates: start: 20230103, end: 20230103
  2. KOVALTRY [Suspect]
     Active Substance: ANTIHEMOPHILIC FACTOR, HUMAN RECOMBINANT
     Dosage: 1 DF, ONCE (TO TREAT THE LEFT THIGH INJURY AND BLEED)
     Route: 042
     Dates: start: 20221029, end: 20221029
  3. KOVALTRY [Suspect]
     Active Substance: ANTIHEMOPHILIC FACTOR, HUMAN RECOMBINANT
     Dosage: 3 DF, ONCE (TO TREAT THE LEFT THIGH INJURY AND BLEED)
     Route: 042
     Dates: start: 20221110, end: 20221110
  4. KOVALTRY [Suspect]
     Active Substance: ANTIHEMOPHILIC FACTOR, HUMAN RECOMBINANT
     Dosage: 3 DF, ONCE (TO TREAT THE LEFT THIGH INJURY AND BLEED)
     Route: 042
     Dates: start: 20221119, end: 20221119
  5. KOVALTRY [Suspect]
     Active Substance: ANTIHEMOPHILIC FACTOR, HUMAN RECOMBINANT
     Dosage: 3 DF, TO TREAT THE RIGHT THIGH INJURY
     Dates: start: 20230103

REACTIONS (6)
  - Haemorrhage [Recovered/Resolved]
  - Limb injury [None]
  - Limb injury [None]
  - Limb injury [None]
  - Limb injury [None]
  - Haemorrhage [None]

NARRATIVE: CASE EVENT DATE: 20221029
